FAERS Safety Report 8081716-5 (Version None)
Quarter: 2012Q1

REPORT INFORMATION
  Report Type: 
  Country: None (occurrence: None)
  Receive Date: 20120130
  Receipt Date: 20120123
  Transmission Date: 20120608
  Serious: Yes (Hospitalization)
  Sender: FDA-Public Use
  Company Number: GB-PFIZER INC-2010057034

PATIENT
  Age: 76 Year
  Sex: Male
  Weight: 76.6 kg

DRUGS (10)
  1. CALCIUM CARBONATE [Concomitant]
     Indication: VITAMIN SUPPLEMENTATION
     Dosage: 1.5 G, 1X/DAY
     Route: 048
     Dates: start: 20070601
  2. ACETAMINOPHEN AND CODEINE PHOSPHATE [Concomitant]
     Indication: ANALGESIC THERAPY
     Dosage: 30 MG, AS NEEDED
     Route: 048
     Dates: start: 20081202
  3. ZOMETA [Concomitant]
     Indication: VITAMIN SUPPLEMENTATION
     Dosage: 4 MG, 4 TIMES WEEKLY
     Route: 042
     Dates: start: 20070601
  4. ACETAMINOPHEN AND CODEINE PHOSPHATE [Concomitant]
     Dosage: 500 MG, AS NEEDED
     Route: 048
     Dates: start: 20081202
  5. SUNITINIB MALATE [Suspect]
     Indication: PROSTATE CANCER
     Dosage: 37.5 MG, 1X/DAY
     Route: 048
     Dates: start: 20100427, end: 20100505
  6. PREDNISOLONE [Suspect]
     Indication: PROSTATE CANCER
     Dosage: 5 MG, 2X/DAY
     Route: 048
     Dates: start: 20100427
  7. CALCIUM CARBONATE [Concomitant]
     Dosage: 10 UG, 1X/DAY
     Route: 048
     Dates: start: 20070601
  8. SPIRIVA [Concomitant]
     Indication: ASTHMA
     Dosage: UNK
     Route: 055
     Dates: start: 20090401
  9. ADIZEM-XL [Concomitant]
     Indication: HYPERTENSION
     Dosage: 120 MG, 1X/DAY
     Route: 048
     Dates: start: 20081202
  10. ROSUVASTATIN [Concomitant]
     Indication: HYPERLIPIDAEMIA
     Dosage: 10 MG, 1X/DAY
     Route: 048
     Dates: start: 20081202

REACTIONS (1)
  - CEREBROVASCULAR ACCIDENT [None]
